FAERS Safety Report 9061375 (Version 1)
Quarter: 2013Q1

REPORT INFORMATION
  Report Type: Spontaneous
  Country: US (occurrence: None)
  Receive Date: 20130208
  Receipt Date: 20130208
  Transmission Date: 20140127
  Serious: Yes (Other)
  Sender: FDA-Public Use
  Company Number: None

PATIENT
  Age: 49 Year
  Sex: Male

DRUGS (2)
  1. INCIVEK [Suspect]
     Indication: HEPATITIS C
     Dosage: 2 TABLETS
     Route: 048
     Dates: start: 20130128
  2. RIBAVIRIN 200MG TAB ZYDUS [Suspect]
     Indication: HEPATITIS C
     Dosage: 2 TABLETS AM AND 3 TABLETS PM, AM AND PM
     Route: 048
     Dates: start: 20130128

REACTIONS (1)
  - Rash [None]
